FAERS Safety Report 5287718-6 (Version None)
Quarter: 2007Q2

REPORT INFORMATION
  Report Type: 
  Country: None (occurrence: None)
  Receive Date: 20070405
  Receipt Date: 20070320
  Transmission Date: 20071010
  Serious: Yes (Other)
  Sender: FDA-Public Use
  Company Number: US-JNJFOC-20070100495

PATIENT
  Sex: Female
  Weight: 113.4 kg

DRUGS (27)
  1. REMICADE [Suspect]
     Route: 042
  2. REMICADE [Suspect]
     Indication: PSORIATIC ARTHROPATHY
     Route: 042
  3. REMICADE [Suspect]
     Indication: RHEUMATOID ARTHRITIS
     Route: 042
  4. PREVACID [Concomitant]
  5. MTX [Concomitant]
     Indication: RHEUMATOID ARTHRITIS
  6. FOLIC ACID [Concomitant]
  7. BYETTA [Concomitant]
     Indication: DIABETES MELLITUS
     Route: 058
  8. METFORMIN HCL [Concomitant]
  9. CALCIUM [Concomitant]
  10. TRAZODONE HCL [Concomitant]
  11. ADVICOR [Concomitant]
  12. PROMETRIUM [Concomitant]
     Route: 048
  13. LYRICA [Concomitant]
  14. AMBIEN [Concomitant]
  15. METHOTREXATE [Concomitant]
  16. ZOCOR [Concomitant]
  17. CHANTIX [Concomitant]
     Route: 048
  18. GLUCOPHAGE [Concomitant]
     Route: 048
  19. ULTRACET [Concomitant]
     Route: 048
  20. DEPO-ESTRADIOL [Concomitant]
     Route: 030
  21. TRIAMCINOLONE ACETONIDE [Concomitant]
  22. DOVONEX [Concomitant]
  23. ULTRA 3A CALCIUM [Concomitant]
     Route: 048
  24. PERNA PLUS [Concomitant]
  25. OMEGA 3 FATTY ACIDS [Concomitant]
     Route: 048
  26. PREGNENOLONE [Concomitant]
     Route: 048
  27. 7 KETO DHEA [Concomitant]
     Route: 048

REACTIONS (2)
  - AMNESIA [None]
  - BRONCHITIS [None]
